FAERS Safety Report 7405782-2 (Version None)
Quarter: 2011Q2

REPORT INFORMATION
  Report Type: 
  Country: None (occurrence: None)
  Receive Date: 20110411
  Receipt Date: 20110405
  Transmission Date: 20111010
  Serious: Yes (Life-Threatening, Other)
  Sender: FDA-Public Use
  Company Number: DE-PFIZER INC-2011074986

PATIENT
  Age: 11 Week
  Sex: Female

DRUGS (1)
  1. SOMATROPIN [Suspect]
     Indication: PRADER-WILLI SYNDROME
     Dosage: 0.2 MG, 1X/DAY
     Dates: start: 20091103

REACTIONS (1)
  - RESPIRATORY DISTRESS [None]
